FAERS Safety Report 5430895-4 (Version None)
Quarter: 2007Q3

REPORT INFORMATION
  Report Type: 
  Country: None (occurrence: None)
  Receive Date: 20070830
  Receipt Date: 20070111
  Transmission Date: 20080115
  Serious: No
  Sender: FDA-Public Use
  Company Number: A0635406A

PATIENT
  Sex: Male

DRUGS (3)
  1. WELLBUTRIN XL [Suspect]
     Indication: DRUG USE FOR UNKNOWN INDICATION
     Route: 048
  2. PROZAC [Concomitant]
  3. RISPERDAL [Concomitant]

REACTIONS (1)
  - CONFUSIONAL STATE [None]
